FAERS Safety Report 9170624 (Version 1)
Quarter: 2013Q1

REPORT INFORMATION
  Report Type: Spontaneous
  Country: US (occurrence: None)
  Receive Date: 20130312
  Receipt Date: 20130312
  Transmission Date: 20140127
  Serious: Yes (Other)
  Sender: FDA-Public Use
  Company Number: US-011049

PATIENT
  Sex: Male

DRUGS (1)
  1. DEGARELIX [Suspect]
     Indication: PROSTATE CANCER
     Dates: start: 201302

REACTIONS (4)
  - Injection site swelling [None]
  - Injection site erythema [None]
  - Injection site warmth [None]
  - Injection site infection [None]
